FAERS Safety Report 15433753 (Version 6)
Quarter: 2019Q1

REPORT INFORMATION
  Report Type: Report from Study
  Country: GB (occurrence: GB)
  Receive Date: 20180927
  Receipt Date: 20190117
  Transmission Date: 20190417
  Serious: Yes (Other)
  Sender: FDA-Public Use
  Company Number: GB-IPSEN BIOPHARMACEUTICALS, INC.-2018-10996

PATIENT
  Sex: Female

DRUGS (3)
  1. SOMATULINE LA [Suspect]
     Active Substance: LANREOTIDE ACETATE
     Dosage: 120 MG?PRE-FILLED SYRINGE
     Route: 058
  2. SOMATULINE LA [Suspect]
     Active Substance: LANREOTIDE ACETATE
     Indication: PRODUCT USED FOR UNKNOWN INDICATION
     Dosage: 120 MG
     Route: 058
     Dates: start: 20180521
  3. SOMATULINE LA [Suspect]
     Active Substance: LANREOTIDE ACETATE
     Dosage: 120 MG?PRE-FILLED SYRINGE
     Route: 058
     Dates: start: 20180919

REACTIONS (20)
  - Feeling abnormal [Unknown]
  - Diarrhoea [Unknown]
  - Asthenia [Unknown]
  - Fatigue [Unknown]
  - Erythema [Recovering/Resolving]
  - Malaise [Recovering/Resolving]
  - Skin warm [Recovering/Resolving]
  - Abdominal pain upper [Not Recovered/Not Resolved]
  - Feeling cold [Not Recovered/Not Resolved]
  - Neoplasm progression [Unknown]
  - Frequent bowel movements [Recovering/Resolving]
  - Therapeutic response decreased [Unknown]
  - Lymphadenopathy [Recovering/Resolving]
  - Weight increased [Unknown]
  - Nausea [Recovered/Resolved]
  - Weight fluctuation [Recovered/Resolved]
  - Decreased appetite [Not Recovered/Not Resolved]
  - Gastrointestinal disorder [Not Recovered/Not Resolved]
  - Fatigue [Recovering/Resolving]
  - Nasopharyngitis [Not Recovered/Not Resolved]

NARRATIVE: CASE EVENT DATE: 2018
